FAERS Safety Report 14447280 (Version 2)
Quarter: 2018Q1

REPORT INFORMATION
  Report Type: Report from Study
  Country: CA (occurrence: CA)
  Receive Date: 20180126
  Receipt Date: 20180226
  Transmission Date: 20180509
  Serious: Yes (Death, Hospitalization)
  Sender: FDA-Public Use
  Company Number: CA-HLSUS-2018-CA-000143

PATIENT
  Age: 68 Year
  Sex: Male

DRUGS (3)
  1. CITALOPRAM [Concomitant]
     Active Substance: CITALOPRAM HYDROBROMIDE
     Dosage: 20MG DAILY MORNING
  2. SEROQUEL [Concomitant]
     Active Substance: QUETIAPINE FUMARATE
     Dosage: 25MG DAILY BED TIME
  3. CLOZARIL [Suspect]
     Active Substance: CLOZAPINE
     Dosage: 100MG AT SUPPER+ 225MG AT BED TIME
     Route: 048
     Dates: start: 20070817, end: 20180103

REACTIONS (1)
  - Emphysema [Fatal]
